FAERS Safety Report 4985974-2 (Version None)
Quarter: 2006Q2

REPORT INFORMATION
  Report Type: 
  Country: None (occurrence: None)
  Receive Date: 20060419
  Receipt Date: 20060302
  Transmission Date: 20061013
  Serious: Yes (Hospitalization)
  Sender: FDA-Public Use
  Company Number: HQWYE686902AUG04

PATIENT
  Age: 82 Year
  Sex: Female

DRUGS (15)
  1. VENLAFAXINE XR [Suspect]
     Indication: DEPRESSION
     Dosage: SEE IMAGE, ORAL
     Route: 048
     Dates: start: 20040709, end: 20040715
  2. VENLAFAXINE XR [Suspect]
     Indication: DEPRESSION
     Dosage: SEE IMAGE, ORAL
     Route: 048
     Dates: start: 20040716, end: 20040717
  3. KOLANTYL (ALUMINIUM HYDROXIDE/DICYCLOVERINE HYDROCHLORIDE/MAGNESIUM OX [Concomitant]
  4. CINAL (ASCORBIC ACID/CALCIUM PANTOTHENATE) [Concomitant]
  5. NIFEDIPINE [Concomitant]
  6. LIPITOR [Concomitant]
  7. PURSENNID (SENNA LEAF) [Concomitant]
  8. SENNOSIDE A+B (SENNOSIDE A+B) [Concomitant]
  9. ZOLPIDEM TARTRATE [Interacting]
  10. HALCION [Concomitant]
  11. DOGMATIL (SULPIRIDE) [Concomitant]
  12. ALOSENN (ACHILLEA/RUBIA ROOT TINCTURE/SENNA FRUIT/SENNA LEAF/TARAXACUM [Concomitant]
  13. GASMOTIN (MOSAPRIDE CITRATE) [Concomitant]
  14. LENDORM [Concomitant]
  15. NAUZELIN (DOMPERIDONE) [Concomitant]

REACTIONS (8)
  - ABDOMINAL PAIN [None]
  - CONDITION AGGRAVATED [None]
  - CONSTIPATION [None]
  - DEMENTIA [None]
  - DRUG WITHDRAWAL SYNDROME [None]
  - HEARING IMPAIRED [None]
  - PARAESTHESIA ORAL [None]
  - PYREXIA [None]
